FAERS Safety Report 7577615-5 (Version None)
Quarter: 2011Q2

REPORT INFORMATION
  Report Type: 
  Country: None (occurrence: None)
  Receive Date: 20110628
  Receipt Date: 20110614
  Transmission Date: 20111010
  Serious: Yes (Hospitalization, Other)
  Sender: FDA-Public Use
  Company Number: US-JNJFOC-20110608381

PATIENT
  Age: 23 Year
  Sex: Male

DRUGS (2)
  1. METHOTREXATE [Concomitant]
     Indication: RHEUMATOID ARTHRITIS
  2. INFLIXIMAB, RECOMBINANT [Suspect]
     Indication: RHEUMATOID ARTHRITIS
     Route: 042

REACTIONS (6)
  - ASCITES [None]
  - PNEUMONIA [None]
  - HISTOPLASMOSIS DISSEMINATED [None]
  - SPLENIC RUPTURE [None]
  - PERITONEAL HAEMORRHAGE [None]
  - MULTI-ORGAN FAILURE [None]
